FAERS Safety Report 19738518 (Version 1)
Quarter: 2021Q3

REPORT INFORMATION
  Report Type: Spontaneous
  Country: US (occurrence: US)
  Receive Date: 20210823
  Receipt Date: 20210823
  Transmission Date: 20211014
  Serious: Yes (Other)
  Sender: FDA-Public Use
  Company Number: None

PATIENT
  Age: 30 Year
  Sex: Female
  Weight: 81 kg

DRUGS (6)
  1. DEXAMETHASONE. [Concomitant]
     Active Substance: DEXAMETHASONE
     Dates: start: 20210819
  2. PRENATAL VITAMIN [Concomitant]
     Active Substance: VITAMINS
     Dates: start: 20210820
  3. BARICITINIB. [Suspect]
     Active Substance: BARICITINIB
     Indication: COVID-19
     Dates: start: 20210820, end: 20210822
  4. HEPARIN [Concomitant]
     Active Substance: HEPARIN SODIUM
     Dates: start: 20210820
  5. REMDESIVIR. [Concomitant]
     Active Substance: REMDESIVIR
     Dates: start: 20210820
  6. FAMODITINE [Concomitant]
     Active Substance: FAMOTIDINE
     Dates: start: 20210820

REACTIONS (1)
  - Transaminases increased [None]

NARRATIVE: CASE EVENT DATE: 20210823
